FAERS Safety Report 15326487 (Version 4)
Quarter: 2018Q4

REPORT INFORMATION
  Report Type: Report from Study
  Country: ZA (occurrence: ZA)
  Receive Date: 20180828
  Receipt Date: 20181016
  Transmission Date: 20190204
  Serious: Yes (Death, Other)
  Sender: FDA-Public Use
  Company Number: ZA-TAKEDA-2018MPI010861

PATIENT
  Sex: Male
  Weight: 113 kg

DRUGS (3)
  1. BETANOID                           /00008501/ [Concomitant]
     Active Substance: BETAMETHASONE
     Indication: PLASMA CELL MYELOMA
     Dosage: 20 MG, UNK
     Route: 048
     Dates: start: 20171127, end: 20171127
  2. IXAZOMIB [Suspect]
     Active Substance: IXAZOMIB
     Indication: PLASMA CELL MYELOMA
     Dosage: 4 MG, UNK
     Route: 048
     Dates: start: 20171127, end: 20171127
  3. REVLIMID [Concomitant]
     Active Substance: LENALIDOMIDE
     Indication: PLASMA CELL MYELOMA
     Dosage: 25 MG, UNK
     Route: 048
     Dates: start: 20171120, end: 20171203

REACTIONS (1)
  - Plasma cell myeloma [Fatal]
